FAERS Safety Report 7400494-3 (Version None)
Quarter: 2011Q1

REPORT INFORMATION
  Report Type: 
  Country: None (occurrence: None)
  Receive Date: 20110329
  Receipt Date: 20110314
  Transmission Date: 20110831
  Serious: Yes (Hospitalization, Other)
  Sender: FDA-Public Use
  Company Number: 2011P1004954

PATIENT
  Age: 48 Year
  Sex: Female
  Weight: 124.7392 kg

DRUGS (12)
  1. FINACEA [Suspect]
     Indication: ROSACEA
     Dosage: ;TOP
     Route: 061
     Dates: start: 20101201, end: 20110212
  2. ADVAIR DISKUS (FLUTICASONE AND SALMETEROL) 100/ 50 [Concomitant]
  3. ENABLEX  (DARIFENACIN) [Concomitant]
  4. NASONEX [Concomitant]
  5. CYMBALTA [Concomitant]
  6. WELLBUTRIN XL (BUPROPION EXTENDED RELEASE) [Concomitant]
  7. LISINOPRIL AND HYDROCHLOROTHIAZIDE [Concomitant]
  8. ALLERGY SHOTS (UNSPECIFIED) [Concomitant]
  9. SOLODYN [Suspect]
     Indication: ROSACEA
     Dosage: 45 MG;QD;PO
     Route: 048
     Dates: start: 20101201, end: 20110212
  10. ALLEGRA [Concomitant]
  11. AMBIEN [Concomitant]
  12. ATIVAN [Concomitant]

REACTIONS (2)
  - ERUCTATION [None]
  - GASTRITIS EROSIVE [None]
